FAERS Safety Report 9946615 (Version 1)
Quarter: 2014Q1

REPORT INFORMATION
  Report Type: Report from Study
  Country: US (occurrence: US)
  Receive Date: 20140303
  Receipt Date: 20140303
  Transmission Date: 20141002
  Serious: Yes (Hospitalization)
  Sender: FDA-Public Use
  Company Number: US-ABBVIE-13P-163-1063161-00

PATIENT
  Age: 51 Year
  Sex: Female
  Weight: 80.81 kg

DRUGS (6)
  1. HUMIRA [Suspect]
     Indication: PSORIATIC ARTHROPATHY
     Dates: start: 201101, end: 20130226
  2. HUMIRA [Suspect]
     Indication: PSORIASIS
  3. TRIAMCINOLONE [Concomitant]
     Indication: PSORIASIS
  4. LEXAPRO [Concomitant]
     Indication: DEPRESSION
  5. SPIRIVA [Concomitant]
     Indication: CHRONIC OBSTRUCTIVE PULMONARY DISEASE
  6. ADVAIR [Concomitant]
     Indication: CHRONIC OBSTRUCTIVE PULMONARY DISEASE

REACTIONS (13)
  - Chest pain [Recovered/Resolved]
  - Pneumonia [Recovered/Resolved]
  - Blood pressure increased [Recovered/Resolved]
  - Drug dose omission [Unknown]
  - Arthralgia [Unknown]
  - Arthralgia [Unknown]
  - Back pain [Unknown]
  - Feeling cold [Unknown]
  - Influenza [Recovered/Resolved]
  - Urticaria [Recovered/Resolved]
  - Mobility decreased [Recovered/Resolved]
  - Hypophagia [Recovered/Resolved]
  - Upper respiratory tract infection [Unknown]
